FAERS Safety Report 14327054 (Version 2)
Quarter: 2018Q4

REPORT INFORMATION
  Report Type: Spontaneous
  Country: US (occurrence: US)
  Receive Date: 20171227
  Receipt Date: 20181122
  Transmission Date: 20190204
  Serious: Yes (Hospitalization, Other)
  Sender: FDA-Public Use
  Company Number: US-ASTRAZENECA-2017SF30498

PATIENT
  Age: 10162 Day
  Sex: Female
  Weight: 85.7 kg

DRUGS (27)
  1. PROCHLORPERAZINE. [Concomitant]
     Active Substance: PROCHLORPERAZINE
     Indication: NAUSEA
     Dosage: 1 SUPPOSITORY (25 MG TOTAL) RECTALLY EVERY 12 (TWELVE) HOURS AS
  2. TEMODAR [Concomitant]
     Active Substance: TEMOZOLOMIDE
     Indication: CHEMOTHERAPY
  3. NAPROSYN [Concomitant]
     Active Substance: NAPROXEN
  4. RADIATION [Concomitant]
     Active Substance: RADIATION THERAPY
     Indication: NEOPLASM MALIGNANT
  5. AMOXICILLIN. [Concomitant]
     Active Substance: AMOXICILLIN
  6. AMITRIPTYLINE [Concomitant]
     Active Substance: AMITRIPTYLINE
     Dosage: TAKE TWO TABLETS (20MG) AT BEDTIME.
  7. SULFAMETHOXAZOLE [Concomitant]
     Active Substance: SULFAMETHOXAZOLE
  8. PRILOSEC [Suspect]
     Active Substance: OMEPRAZOLE MAGNESIUM
     Indication: GASTROOESOPHAGEAL REFLUX DISEASE
     Route: 048
  9. TOPIRAMATE. [Concomitant]
     Active Substance: TOPIRAMATE
  10. GABAPENTIN. [Concomitant]
     Active Substance: GABAPENTIN
  11. DRONABINOL. [Concomitant]
     Active Substance: DRONABINOL
  12. MAGNESIUM OXIDE. [Concomitant]
     Active Substance: MAGNESIUM OXIDE
  13. MEGESTROL ACETATE. [Concomitant]
     Active Substance: MEGESTROL ACETATE
  14. PRILOSEC [Suspect]
     Active Substance: OMEPRAZOLE MAGNESIUM
     Indication: GASTROOESOPHAGEAL REFLUX DISEASE
     Dosage: GENERIC
     Route: 065
  15. PRILOSEC [Suspect]
     Active Substance: OMEPRAZOLE MAGNESIUM
     Indication: GASTROOESOPHAGEAL REFLUX DISEASE
     Route: 048
     Dates: start: 20141024
  16. PRILOSEC OTC [Suspect]
     Active Substance: OMEPRAZOLE MAGNESIUM
     Indication: GASTROOESOPHAGEAL REFLUX DISEASE
     Route: 048
     Dates: start: 2014
  17. NYSTATIN. [Concomitant]
     Active Substance: NYSTATIN
  18. SENOKOT-S [Concomitant]
     Active Substance: DOCUSATE SODIUM\SENNOSIDES
     Dosage: TAKE 1 TABLET BY MOUTH 2 (TWO) TIMES DAY
  19. DEXAMETHASONE. [Concomitant]
     Active Substance: DEXAMETHASONE
  20. LEVETIRACETAM. [Concomitant]
     Active Substance: LEVETIRACETAM
     Dosage: TAKE 1 TABLET (500 MG TOTAL) BY MOUTH EVERY 12 (TWE LVE) HOURS.
  21. OXYCONTIN [Concomitant]
     Active Substance: OXYCODONE HYDROCHLORIDE
     Dosage: 1 TABLET (30 MG TOTAL) BY MOUTH EVERY 12 (TWELVE) HOURS.
  22. LORAZEPAM. [Concomitant]
     Active Substance: LORAZEPAM
     Indication: NAUSEA
     Dosage: ATIVAN-(0.5 MG)1 TO 2 TABLETS AT BEDTIME AS NEEDED
  23. ONDANSETRON [Concomitant]
     Active Substance: ONDANSETRON
     Indication: NAUSEA
     Dosage: TAKE 1 TABLET (8 MG TOTAL) BY MOUTH EVERY 8 (EIGHT) HOURS AS NEEDED
  24. COMPAZINE [Concomitant]
     Active Substance: PROCHLORPERAZINE MALEATE
     Indication: NAUSEA
     Dosage: 25 MG RECTALLY EVERY 12 HOURS
  25. HYDROMORPHONE [Concomitant]
     Active Substance: HYDROMORPHONE
     Indication: PAIN
     Dosage: 1 TABLET (4 MG TOTAL) BY MOUTH EVERY 4 (FOUR) HOURS AS NEEDED
  26. BACTRIM [Concomitant]
     Active Substance: SULFAMETHOXAZOLE\TRIMETHOPRIM
     Dosage: TAKE 2 TABLETS (160 MG TOTAL) BY MOUTH 3 (THREE) TIMES A WEEK.
  27. FLUCONAZOLE. [Concomitant]
     Active Substance: FLUCONAZOLE

REACTIONS (2)
  - Acute kidney injury [Unknown]
  - Chronic kidney disease [Unknown]

NARRATIVE: CASE EVENT DATE: 20141218
